FAERS Safety Report 25332559 (Version 1)
Quarter: 2025Q2

REPORT INFORMATION
  Report Type: Spontaneous
  Country: US (occurrence: US)
  Receive Date: 20250519
  Receipt Date: 20250519
  Transmission Date: 20250717
  Serious: No
  Sender: ALEXION PHARMACEUTICALS
  Company Number: US-AstraZeneca-CH-00872335A

PATIENT
  Age: 58 Year
  Weight: 52.154 kg

DRUGS (1)
  1. ROSUVASTATIN [Suspect]
     Active Substance: ROSUVASTATIN
     Indication: Blood cholesterol decreased

REACTIONS (6)
  - Throat tightness [Recovered/Resolved]
  - Pruritus [Recovered/Resolved]
  - Asthma [Recovered/Resolved]
  - Hypersensitivity [Recovered/Resolved]
  - Secretion discharge [Recovered/Resolved]
  - Cough [Recovered/Resolved]
